FAERS Safety Report 18064029 (Version 1)
Quarter: 2020Q3

REPORT INFORMATION
  Report Type: Spontaneous
  Country: US (occurrence: US)
  Receive Date: 20200724
  Receipt Date: 20200724
  Transmission Date: 20201103
  Serious: No
  Sender: FDA-Public Use
  Company Number: US-KAMADA LIMITED-2020US002126

PATIENT

DRUGS (2)
  1. GLASSIA [Suspect]
     Active Substance: .ALPHA.1-PROTEINASE INHIBITOR HUMAN
     Indication: ALPHA-1 ANTITRYPSIN DEFICIENCY
     Dosage: 5000 MG (60MG/KG, 5 VIALS), ONCE WEEKLY ON SATURDAYS
     Route: 042
     Dates: start: 20200403
  2. GLASSIA [Suspect]
     Active Substance: .ALPHA.1-PROTEINASE INHIBITOR HUMAN
     Dosage: 5000 MG (60MG/KG, 5 VIALS), ONCE WEEKLY ON SATURDAYS
     Route: 042
     Dates: start: 202004

REACTIONS (1)
  - Disorientation [Recovered/Resolved]

NARRATIVE: CASE EVENT DATE: 20200403
